FAERS Safety Report 9267697 (Version 1)
Quarter: 2013Q2

REPORT INFORMATION
  Report Type: Spontaneous
  Country: US (occurrence: US)
  Receive Date: 20130502
  Receipt Date: 20130502
  Transmission Date: 20140414
  Serious: No
  Sender: FDA-Public Use
  Company Number: US-ALEXION-A201200841

PATIENT
  Age: 4 Year
  Sex: Female

DRUGS (9)
  1. SOLIRIS 300MG [Suspect]
     Indication: HAEMOLYTIC URAEMIC SYNDROME
     Dosage: 300 MG, Q2W
     Route: 042
     Dates: start: 201112
  2. CLONIDINE [Concomitant]
     Dosage: UNK
  3. AMLODIPINE [Concomitant]
     Dosage: UNK
  4. ENALAPRIL [Concomitant]
     Dosage: UNK
  5. MEPRON [Concomitant]
     Dosage: UNK
  6. IRON [Concomitant]
     Dosage: UNK
  7. ALBUTEROL [Concomitant]
     Dosage: UNK
  8. MONTELUKAST [Concomitant]
     Dosage: UNK
  9. BECLOMETHASONE [Concomitant]
     Dosage: UNK

REACTIONS (2)
  - Asthma [Unknown]
  - Pneumonia [Recovered/Resolved]
